FAERS Safety Report 25059352 (Version 1)
Quarter: 2025Q1

REPORT INFORMATION
  Report Type: Spontaneous
  Country: CN (occurrence: CN)
  Receive Date: 20250310
  Receipt Date: 20250310
  Transmission Date: 20250409
  Serious: Yes (Hospitalization)
  Sender: PAREXEL
  Company Number: CN-SHANGHAI JUNSHI BIOSCIENCES CO., LTD.-CN2025013245

PATIENT

DRUGS (6)
  1. TORIPALIMAB [Suspect]
     Active Substance: TORIPALIMAB
     Indication: Lung squamous cell carcinoma stage II
     Route: 041
     Dates: start: 20250124, end: 20250124
  2. TORIPALIMAB [Suspect]
     Active Substance: TORIPALIMAB
     Route: 041
     Dates: start: 20250217, end: 20250217
  3. PACLITAXEL [Concomitant]
     Active Substance: PACLITAXEL
     Indication: Lung squamous cell carcinoma stage II
     Route: 041
     Dates: start: 20241212, end: 20250125
  4. PACLITAXEL [Concomitant]
     Active Substance: PACLITAXEL
     Route: 041
     Dates: start: 20250217, end: 20250218
  5. CISPLATIN [Concomitant]
     Active Substance: CISPLATIN
     Indication: Lung squamous cell carcinoma stage II
     Route: 041
     Dates: start: 20241212, end: 20250125
  6. CISPLATIN [Concomitant]
     Active Substance: CISPLATIN
     Route: 041
     Dates: start: 20250217, end: 20250218

REACTIONS (2)
  - Pruritus [Recovering/Resolving]
  - Macule [Recovering/Resolving]

NARRATIVE: CASE EVENT DATE: 20250218
